FAERS Safety Report 12675615 (Version 1)
Quarter: 2016Q3

REPORT INFORMATION
  Report Type: Spontaneous
  Country: US (occurrence: US)
  Receive Date: 20160823
  Receipt Date: 20160823
  Transmission Date: 20161109
  Serious: Yes (Hospitalization)
  Sender: FDA-Public Use
  Company Number: US-JNJFOC-20160811220

PATIENT
  Sex: Female

DRUGS (18)
  1. SYNTHROID [Concomitant]
     Active Substance: LEVOTHYROXINE SODIUM
     Indication: THYROXINE DECREASED
     Dosage: 100 MCG TABLET DAILY??STARTED SEVERAL YEARS AGO.
     Route: 048
  2. LIVALO [Concomitant]
     Active Substance: PITAVASTATIN CALCIUM
     Indication: BLOOD TRIGLYCERIDES INCREASED
     Dosage: ONCE DAILY IN EVENING??STARTED ABOUT 6 MONTHS AGO
     Route: 048
  3. MAGNESIUM [Concomitant]
     Active Substance: MAGNESIUM
     Indication: BLOOD MAGNESIUM DECREASED
     Dosage: MORNING AND NIGHT.HAS BEEN ON IT FOR A WHILE.DOSE INCREASED FROM ONCE DAILY TO TWICE DAILY.
     Route: 048
  4. VITAMIN D [Concomitant]
     Active Substance: CHOLECALCIFEROL
     Indication: MASTECTOMY
     Route: 048
     Dates: start: 2007
  5. LASIX [Concomitant]
     Active Substance: FUROSEMIDE
     Indication: CARDIAC FAILURE CONGESTIVE
     Dosage: 40 MG PILL ONCE DAILY.
     Route: 048
     Dates: start: 2011
  6. METOPROLOL. [Concomitant]
     Active Substance: METOPROLOL
     Indication: PALPITATIONS
     Dosage: 50 MG 1 1/2 TABLETS BY MOUTH TWICE DAILY
     Route: 048
  7. MECLIZINE [Concomitant]
     Active Substance: MECLIZINE HYDROCHLORIDE
     Indication: VERTIGO
     Dosage: TAKING FOR YEARS.
     Route: 048
  8. OMEPRAZOLE. [Concomitant]
     Active Substance: OMEPRAZOLE
     Indication: POLYP
     Dosage: STARTED YEARS AGO
     Route: 048
  9. CALCIUM [Concomitant]
     Active Substance: CALCIUM
     Indication: RADIOTHERAPY
     Route: 048
     Dates: start: 2007
  10. TIKOSYN [Suspect]
     Active Substance: DOFETILIDE
     Indication: ATRIAL FIBRILLATION
     Dosage: TAKES AT 9 A.M AND 9 P.M.
     Route: 048
     Dates: start: 201103
  11. SYNTHROID [Concomitant]
     Active Substance: LEVOTHYROXINE SODIUM
     Indication: TRI-IODOTHYRONINE FREE DECREASED
     Dosage: 100 MCG TABLET DAILY??STARTED SEVERAL YEARS AGO.
     Route: 048
  12. PRADAXA [Concomitant]
     Active Substance: DABIGATRAN ETEXILATE MESYLATE
     Indication: CEREBROVASCULAR ACCIDENT PROPHYLAXIS
     Dosage: MORNING AND NIGHT
     Route: 048
     Dates: start: 2011
  13. SPIRONOLACTONE. [Concomitant]
     Active Substance: SPIRONOLACTONE
     Indication: DIURETIC THERAPY
     Route: 048
  14. LOPERAMIDE HYDROCHLORIDE. [Suspect]
     Active Substance: LOPERAMIDE HYDROCHLORIDE
     Indication: DIARRHOEA
     Dosage: AS NEEDED.
     Route: 048
     Dates: end: 20160804
  15. LOPERAMIDE HYDROCHLORIDE. [Suspect]
     Active Substance: LOPERAMIDE HYDROCHLORIDE
     Route: 048
  16. OMEPRAZOLE. [Concomitant]
     Active Substance: OMEPRAZOLE
     Indication: GASTROOESOPHAGEAL REFLUX DISEASE
     Dosage: STARTED YEARS AGO
     Route: 048
  17. CALCIUM [Concomitant]
     Active Substance: CALCIUM
     Indication: MASTECTOMY
     Route: 048
     Dates: start: 2007
  18. VITAMIN D [Concomitant]
     Active Substance: CHOLECALCIFEROL
     Indication: RADIOTHERAPY
     Route: 048
     Dates: start: 2007

REACTIONS (3)
  - Dizziness [Unknown]
  - Atrial fibrillation [Not Recovered/Not Resolved]
  - Diarrhoea [Not Recovered/Not Resolved]
